FAERS Safety Report 9352847 (Version 1)
Quarter: 2013Q2

REPORT INFORMATION
  Report Type: Spontaneous
  Country: US (occurrence: US)
  Receive Date: 20130618
  Receipt Date: 20130618
  Transmission Date: 20140414
  Serious: No
  Sender: FDA-Public Use
  Company Number: US-BIOGENIDEC-2013BI053189

PATIENT
  Age: 50 Year
  Sex: Female

DRUGS (2)
  1. TYSABRI [Suspect]
     Indication: MULTIPLE SCLEROSIS
     Route: 042
  2. TYSABRI [Suspect]
     Indication: MULTIPLE SCLEROSIS
     Route: 042
     Dates: start: 20120216

REACTIONS (15)
  - Swelling [Recovered/Resolved]
  - Depression [Not Recovered/Not Resolved]
  - Thinking abnormal [Recovered/Resolved]
  - Adverse reaction [Recovered/Resolved]
  - Weight increased [Recovered/Resolved]
  - Back pain [Unknown]
  - Spinal disorder [Unknown]
  - Weight decreased [Not Recovered/Not Resolved]
  - Herpes zoster [Recovered/Resolved]
  - Dizziness [Recovered/Resolved]
  - Lethargy [Recovered/Resolved]
  - Nausea [Recovered/Resolved]
  - Arthralgia [Unknown]
  - Pruritus [Recovered/Resolved]
  - Rash [Recovered/Resolved]
